FAERS Safety Report 5519299-3 (Version None)
Quarter: 2007Q4

REPORT INFORMATION
  Report Type: 
  Country: None (occurrence: None)
  Receive Date: 20071114
  Receipt Date: 20071102
  Transmission Date: 20080405
  Serious: Yes (Death, Life-Threatening, Hospitalization, Other)
  Sender: FDA-Public Use
  Company Number: 2006VX000056

PATIENT
  Age: 85 Year
  Sex: Female

DRUGS (10)
  1. PERMAX [Suspect]
     Indication: PARKINSON'S DISEASE
     Dosage: 150 UG; QD; PO, 250 UG; QD; PO, 250 UG; BID; PO, 250 UG; TID; PO
     Route: 048
     Dates: start: 20021002, end: 20041214
  2. PERMAX [Suspect]
     Indication: PARKINSON'S DISEASE
     Dosage: 150 UG; QD; PO, 250 UG; QD; PO, 250 UG; BID; PO, 250 UG; TID; PO
     Route: 048
     Dates: start: 20041215, end: 20050413
  3. PERMAX [Suspect]
     Indication: PARKINSON'S DISEASE
     Dosage: 150 UG; QD; PO, 250 UG; QD; PO, 250 UG; BID; PO, 250 UG; TID; PO
     Route: 048
     Dates: start: 20050414, end: 20050620
  4. PERMAX [Suspect]
     Indication: PARKINSON'S DISEASE
     Dosage: 150 UG; QD; PO, 250 UG; QD; PO, 250 UG; BID; PO, 250 UG; TID; PO
     Route: 048
     Dates: start: 20050621, end: 20060106
  5. MADOPAR [Concomitant]
  6. SEDIEL [Concomitant]
  7. LUVOX [Concomitant]
  8. ALOSENN [Concomitant]
  9. NAUZELIN [Concomitant]
  10. GASTER [Concomitant]

REACTIONS (15)
  - AORTIC VALVE INCOMPETENCE [None]
  - BLOOD PRESSURE DECREASED [None]
  - CARDIAC FAILURE [None]
  - DISEASE RECURRENCE [None]
  - FATIGUE [None]
  - HAEMODIALYSIS [None]
  - MITRAL VALVE INCOMPETENCE [None]
  - NO THERAPEUTIC RESPONSE [None]
  - OEDEMA PERIPHERAL [None]
  - PLEURAL EFFUSION [None]
  - PNEUMONIA ASPIRATION [None]
  - PULMONARY VALVE INCOMPETENCE [None]
  - PULSE PRESSURE DECREASED [None]
  - RENAL FAILURE [None]
  - TRICUSPID VALVE INCOMPETENCE [None]
